FAERS Safety Report 9717909 (Version 1)
Quarter: 2013Q4

REPORT INFORMATION
  Report Type: Spontaneous
  Country: US (occurrence: US)
  Receive Date: 20131125
  Receipt Date: 20131125
  Transmission Date: 20140711
  Serious: No
  Sender: FDA-Public Use
  Company Number: US-VIVUS-2013V1000361

PATIENT
  Age: 51 Year
  Sex: Female
  Weight: 89.44 kg

DRUGS (3)
  1. QSYMIA 7.5MG/46MG [Suspect]
     Indication: WEIGHT DECREASED
     Route: 048
     Dates: start: 20130430, end: 20130508
  2. PREVACID [Concomitant]
     Indication: PRODUCT USED FOR UNKNOWN INDICATION
     Dates: start: 2009
  3. HORMONE REPLACEMENT PATCH [Concomitant]
     Indication: PRODUCT USED FOR UNKNOWN INDICATION
     Dates: start: 201302

REACTIONS (3)
  - Headache [Not Recovered/Not Resolved]
  - Aphasia [Not Recovered/Not Resolved]
  - Dysgeusia [Not Recovered/Not Resolved]
